FAERS Safety Report 4283822-X (Version None)
Quarter: 2004Q1

REPORT INFORMATION
  Report Type: 
  Country: None (occurrence: None)
  Receive Date: 20040130
  Receipt Date: 20040119
  Transmission Date: 20041129
  Serious: Yes (Other)
  Sender: FDA-Public Use
  Company Number: US-JNJFOC-20040103368

PATIENT
  Age: 46 Year
  Sex: Male
  Weight: 94.3482 kg

DRUGS (8)
  1. REMICADE [Suspect]
     Indication: RHEUMATOID ARTHRITIS
     Dosage: 650 MG, 1 IN 6 WEEK, INTRAVENOUS
     Route: 042
  2. CELEBREX [Concomitant]
  3. FOLIC ACID [Concomitant]
  4. ZYRTEC [Concomitant]
  5. AMARYL [Concomitant]
  6. ULTRAM [Concomitant]
  7. AMBIEN [Concomitant]
  8. METOPROLOL SUCCINATE [Concomitant]

REACTIONS (1)
  - DIABETES MELLITUS [None]
